FAERS Safety Report 7290586-4 (Version None)
Quarter: 2011Q1

REPORT INFORMATION
  Report Type: 
  Country: None (occurrence: None)
  Receive Date: 20110214
  Receipt Date: 20110202
  Transmission Date: 20110831
  Serious: Yes (Hospitalization)
  Sender: FDA-Public Use
  Company Number: IN-JNJCH-2011003600

PATIENT
  Age: 15 Year
  Sex: Male

DRUGS (1)
  1. ZYRTEC [Suspect]
     Indication: NASOPHARYNGITIS
     Dosage: TEXT:UNKNOWN
     Route: 065
     Dates: start: 20110122, end: 20110124

REACTIONS (3)
  - PHARYNGITIS [None]
  - COUGH [None]
  - OROPHARYNGEAL DISCOMFORT [None]
